FAERS Safety Report 13538441 (Version 1)
Quarter: 2017Q2

REPORT INFORMATION
  Report Type: Spontaneous
  Country: US (occurrence: US)
  Receive Date: 20170512
  Receipt Date: 20170512
  Transmission Date: 20170830
  Serious: No
  Sender: FDA-Public Use
  Company Number: US-WEST-WARD PHARMACEUTICALS CORP.-US-H14001-17-01273

PATIENT
  Age: 56 Year
  Sex: Female

DRUGS (3)
  1. ALOSETRON [Suspect]
     Active Substance: ALOSETRON
     Route: 065
     Dates: start: 201612, end: 201612
  2. ALOSETRON [Suspect]
     Active Substance: ALOSETRON
     Route: 065
     Dates: start: 201612, end: 201703
  3. ALOSETRON [Suspect]
     Active Substance: ALOSETRON
     Indication: IRRITABLE BOWEL SYNDROME
     Route: 065
     Dates: start: 201611, end: 201612

REACTIONS (4)
  - Migraine [Unknown]
  - Sinusitis [Recovering/Resolving]
  - Weight increased [Unknown]
  - Constipation [Unknown]

NARRATIVE: CASE EVENT DATE: 201612
